FAERS Safety Report 13829738 (Version 3)
Quarter: 2018Q1

REPORT INFORMATION
  Report Type: Report from Study
  Country: US (occurrence: US)
  Receive Date: 20170803
  Receipt Date: 20180330
  Transmission Date: 20180508
  Serious: Yes (Hospitalization)
  Sender: FDA-Public Use
  Company Number: US-VERTEX PHARMACEUTICALS-2017-003883

PATIENT
  Age: 22 Year
  Sex: Male
  Weight: 48 kg

DRUGS (1)
  1. ORKAMBI [Suspect]
     Active Substance: IVACAFTOR\LUMACAFTOR
     Indication: CYSTIC FIBROSIS
     Dosage: 200/125MG TABLETS, BID
     Route: 048
     Dates: start: 20161107

REACTIONS (2)
  - Pulmonary function test decreased [Unknown]
  - Chest discomfort [Unknown]

NARRATIVE: CASE EVENT DATE: 20161107
